FAERS Safety Report 5331015-7 (Version None)
Quarter: 2007Q2

REPORT INFORMATION
  Report Type: 
  Country: None (occurrence: None)
  Receive Date: 20070518
  Receipt Date: 20070518
  Transmission Date: 20071010
  Serious: Yes (Hospitalization)
  Sender: FDA-Public Use
  Company Number: None

PATIENT
  Age: 79 Year
  Sex: Male
  Weight: 72.8023 kg

DRUGS (17)
  1. GALANTAMINE HYDROBROMIDE [Suspect]
     Indication: VASCULAR DEMENTIA
     Dosage: 16MG DAILY PO
     Route: 048
     Dates: start: 20070306, end: 20070308
  2. GALANTAMINE HYDROBROMIDE [Suspect]
     Indication: VASCULAR ENCEPHALOPATHY
     Dosage: 16MG DAILY PO
     Route: 048
     Dates: start: 20070306, end: 20070308
  3. ALENDRONATE SODIUM [Concomitant]
  4. CIPROFLOXACIN HCL [Concomitant]
  5. CITALOPRAM HYDROBROMIDE [Concomitant]
  6. CLOPIDOGREL BISULFATE [Concomitant]
  7. CYANOCOBALAMIN [Concomitant]
  8. DEPEND BOOST LINER [Concomitant]
  9. DEPEND UNDERGARMENT [Concomitant]
  10. DIAZEPAM [Concomitant]
  11. ERGOCALCIFEROL-VITAMIN D [Concomitant]
  12. FELODIPINE [Concomitant]
  13. FINASTERIDE [Concomitant]
  14. FUROSEMIDE [Concomitant]
  15. INCONTINENCE BRIEF [Concomitant]
  16. METFORMIN HCL [Concomitant]
  17. METHYLPHENIDATE HCL [Concomitant]

REACTIONS (12)
  - ASTERIXIS [None]
  - DEHYDRATION [None]
  - DIARRHOEA [None]
  - DRY MOUTH [None]
  - DYSARTHRIA [None]
  - EYE DISORDER [None]
  - FACIAL PALSY [None]
  - HYPOPERFUSION [None]
  - MIOSIS [None]
  - MUSCLE DISORDER [None]
  - NERVOUS SYSTEM DISORDER [None]
  - TREMOR [None]
